FAERS Safety Report 4858168-9 (Version None)
Quarter: 2005Q4

REPORT INFORMATION
  Report Type: 
  Country: None (occurrence: None)
  Receive Date: 20051219
  Receipt Date: 20050317
  Transmission Date: 20060501
  Serious: No
  Sender: FDA-Public Use
  Company Number: US-GLAXOSMITHKLINE-A0550196A

PATIENT
  Age: 50 Year
  Sex: Female
  Weight: 43.6 kg

DRUGS (7)
  1. NICODERM CQ [Suspect]
     Route: 062
     Dates: start: 20050220, end: 20050315
  2. SYNTHROID [Concomitant]
     Indication: HYPOTHYROIDISM
  3. PREMPRO [Concomitant]
  4. ASCORBIC ACID [Concomitant]
  5. VITAMIN E [Concomitant]
  6. VITAMIN B COMPLEX CAP [Concomitant]
  7. VALTREX [Concomitant]

REACTIONS (8)
  - ABDOMINAL PAIN [None]
  - BLOOD PRESSURE INCREASED [None]
  - CONSTIPATION [None]
  - DIZZINESS [None]
  - DRUG INEFFECTIVE [None]
  - FAECALOMA [None]
  - NAUSEA [None]
  - PYREXIA [None]
